FAERS Safety Report 7970289-0 (Version None)
Quarter: 2011Q4

REPORT INFORMATION
  Report Type: 
  Country: None (occurrence: None)
  Receive Date: 20111212
  Receipt Date: 20111201
  Transmission Date: 20120403
  Serious: Yes (Hospitalization, Other)
  Sender: FDA-Public Use
  Company Number: US-BAYER-2011-058396

PATIENT
  Age: 19 Year
  Sex: Female
  Weight: 68 kg

DRUGS (7)
  1. NASACORT AQ [Concomitant]
     Indication: MULTIPLE ALLERGIES
     Dosage: 55 ?G, UNK
     Route: 045
     Dates: start: 20091221
  2. DESOGESTREL AND ETHINYL ESTRADIOL [Concomitant]
     Dosage: UNK
     Route: 048
     Dates: start: 20091221
  3. PANTOPRAZOLE SODIUM [Concomitant]
     Dosage: 40 MG, UNK
     Route: 048
     Dates: start: 20091103
  4. ZYRTEC [Concomitant]
     Dosage: UNK
     Dates: start: 20091221
  5. FLUCONAZOLE [Concomitant]
     Dosage: 150 MG, UNK
     Route: 048
     Dates: start: 20090908, end: 20091103
  6. YASMIN [Suspect]
     Dosage: UNK
     Dates: start: 20090601, end: 20091201
  7. ALIMENTARY TRACT AND METABOLISM [Concomitant]
     Dosage: UNK
     Route: 048
     Dates: start: 20091221

REACTIONS (3)
  - CHOLECYSTITIS CHRONIC [None]
  - INJURY [None]
  - CHOLECYSTECTOMY [None]
